FAERS Safety Report 8377426-7 (Version None)
Quarter: 2012Q2

REPORT INFORMATION
  Report Type: 
  Country: None (occurrence: None)
  Receive Date: 20120522
  Receipt Date: 20120117
  Transmission Date: 20120825
  Serious: No
  Sender: FDA-Public Use
  Company Number: US-ASTRAZENECA-2012SE03209

PATIENT
  Age: 67 Year
  Sex: Female
  Weight: 69.4 kg

DRUGS (4)
  1. GINKO BILOBA [Interacting]
     Indication: PHYTOTHERAPY
  2. PRILOSEC [Suspect]
     Indication: DUODENAL ULCER
     Route: 048
     Dates: start: 20111231
  3. ST JOHN'S WORT [Interacting]
  4. GEMZAR [Concomitant]
     Indication: CHEMOTHERAPY
     Route: 042

REACTIONS (4)
  - FULL BLOOD COUNT DECREASED [None]
  - DRUG INTERACTION [None]
  - ANAEMIA [None]
  - MUSCLE SPASMS [None]
